FAERS Safety Report 25260597 (Version 1)
Quarter: 2025Q2

REPORT INFORMATION
  Report Type: Spontaneous
  Country: US (occurrence: US)
  Receive Date: 20250501
  Receipt Date: 20250501
  Transmission Date: 20250716
  Serious: Yes (Hospitalization)
  Sender: NOVO NORDISK
  Company Number: US-NOVOPROD-1406984

PATIENT
  Sex: Female

DRUGS (2)
  1. OZEMPIC [Suspect]
     Active Substance: SEMAGLUTIDE
     Indication: Product used for unknown indication
  2. OZEMPIC [Suspect]
     Active Substance: SEMAGLUTIDE
     Indication: Product used for unknown indication
     Dates: start: 2025

REACTIONS (5)
  - Urinary tract infection [Not Recovered/Not Resolved]
  - Illness [Not Recovered/Not Resolved]
  - Blood glucose increased [Unknown]
  - Product dose omission issue [Unknown]
  - Weight increased [Unknown]
